FAERS Safety Report 6830056-8 (Version None)
Quarter: 2010Q3

REPORT INFORMATION
  Report Type: 
  Country: None (occurrence: None)
  Receive Date: 20100711
  Receipt Date: 20100429
  Transmission Date: 20110219
  Serious: No
  Sender: FDA-Public Use
  Company Number: US-ALLERGAN-1005692US

PATIENT
  Age: 63 Year
  Sex: Female

DRUGS (5)
  1. LATISSE [Suspect]
     Indication: GROWTH OF EYELASHES
     Dosage: 1 GTT, QHS
     Route: 061
  2. HYPERTENSION MEDICATION [Concomitant]
  3. HYPERCHOLESTEREMIA DRUG [Concomitant]
  4. OSTEOARTHRITIS MEDICATION [Concomitant]
  5. OTC EYE MOISTURE DROPS [Concomitant]

REACTIONS (1)
  - DRUG INEFFECTIVE [None]
